FAERS Safety Report 14360306 (Version 3)
Quarter: 2018Q1

REPORT INFORMATION
  Report Type: Spontaneous
  Country: HK (occurrence: HK)
  Receive Date: 20180106
  Receipt Date: 20180227
  Transmission Date: 20180509
  Serious: Yes (Death, Life-Threatening, Hospitalization, Other)
  Sender: FDA-Public Use
  Company Number: HK-SUN PHARMACEUTICAL INDUSTRIES LTD-2017R1-158913

PATIENT
  Age: 71 Year
  Sex: Female

DRUGS (4)
  1. MIDAZOLAM [Concomitant]
     Active Substance: MIDAZOLAM HYDROCHLORIDE
     Indication: STATUS EPILEPTICUS
     Dosage: UNK
     Route: 042
  2. VALPROIC ACID. [Suspect]
     Active Substance: VALPROIC ACID
     Indication: STATUS EPILEPTICUS
     Dosage: 1200 MG, DAILY, 18 MG/KG/DAY
     Route: 065
  3. NIMODIPINE. [Concomitant]
     Active Substance: NIMODIPINE
     Indication: ANEURYSM RUPTURED
     Dosage: UNK
  4. VALPROIC ACID. [Suspect]
     Active Substance: VALPROIC ACID
     Dosage: 400 MG, QID
     Route: 065

REACTIONS (5)
  - Multiple organ dysfunction syndrome [Unknown]
  - Brain oedema [Unknown]
  - Pneumonia [Unknown]
  - Hyperammonaemic encephalopathy [Fatal]
  - Septic shock [Unknown]
